FAERS Safety Report 16383509 (Version 4)
Quarter: 2021Q2

REPORT INFORMATION
  Report Type: Spontaneous
  Country: US (occurrence: US)
  Receive Date: 20190603
  Receipt Date: 20210602
  Transmission Date: 20210716
  Serious: No
  Sender: FDA-Public Use
  Company Number: US-PFIZER INC-2019229470

PATIENT
  Age: 69 Year
  Sex: Female
  Weight: 50.8 kg

DRUGS (1)
  1. ESTRING [Suspect]
     Active Substance: ESTRADIOL
     Indication: ATROPHY
     Dosage: UNK (ESTRING TAKEN OUT AFTER 2 WEEKS)
     Route: 067
     Dates: start: 202006, end: 202006

REACTIONS (2)
  - Intentional product misuse [Unknown]
  - Fungal infection [Unknown]

NARRATIVE: CASE EVENT DATE: 202006
